FAERS Safety Report 16815667 (Version 1)
Quarter: 2019Q3

REPORT INFORMATION
  Report Type: Spontaneous
  Country: US (occurrence: US)
  Receive Date: 20190725
  Receipt Date: 20190725
  Transmission Date: 20191005
  Serious: No
  Sender: FDA-Public Use
  Company Number: None

PATIENT
  Age: 40 Year
  Sex: Female
  Weight: 86.45 kg

DRUGS (3)
  1. NIFEDIPINE. [Concomitant]
     Active Substance: NIFEDIPINE
  2. LENVIMA [Suspect]
     Active Substance: LENVATINIB
     Indication: METASTATIC NEOPLASM
     Route: 048
     Dates: start: 20190507, end: 20190725
  3. DEBROX OTIC [Concomitant]

REACTIONS (5)
  - Decreased appetite [None]
  - Blood pressure increased [None]
  - Heart rate increased [None]
  - Arthralgia [None]
  - Peripheral swelling [None]

NARRATIVE: CASE EVENT DATE: 20190725
